FAERS Safety Report 7869680-2 (Version None)
Quarter: 2011Q4

REPORT INFORMATION
  Report Type: 
  Country: None (occurrence: None)
  Receive Date: 20111028
  Receipt Date: 20110106
  Transmission Date: 20120403
  Serious: No
  Sender: FDA-Public Use
  Company Number: US-AMGEN-USASP2010009089

PATIENT
  Age: 17 Year
  Sex: Female
  Weight: 64.853 kg

DRUGS (2)
  1. ENBREL [Suspect]
     Indication: SPONDYLOARTHROPATHY
     Dosage: 50 MG, QWK
     Dates: start: 20101110, end: 20101201
  2. ENBREL [Suspect]
     Indication: SERONEGATIVE ARTHRITIS

REACTIONS (5)
  - INJECTION SITE WARMTH [None]
  - INJECTION SITE ERYTHEMA [None]
  - INJECTION SITE PAIN [None]
  - INJECTION SITE MASS [None]
  - INJECTION SITE REACTION [None]
